FAERS Safety Report 8364687-3 (Version None)
Quarter: 2012Q2

REPORT INFORMATION
  Report Type: 
  Country: None (occurrence: None)
  Receive Date: 20120516
  Receipt Date: 20120509
  Transmission Date: 20120825
  Serious: Yes (Hospitalization)
  Sender: FDA-Public Use
  Company Number: US-AMGEN-USASP2012029355

PATIENT
  Age: 58 Year
  Sex: Female

DRUGS (1)
  1. ENBREL [Suspect]
     Indication: RHEUMATOID ARTHRITIS
     Dosage: 50 MG, QWK
     Dates: end: 20111001

REACTIONS (7)
  - MUSCULOSKELETAL CHEST PAIN [None]
  - PULMONARY CONGESTION [None]
  - DRUG INEFFECTIVE [None]
  - SINUSITIS [None]
  - BRONCHITIS [None]
  - RHEUMATOID ARTHRITIS [None]
  - PNEUMONIA PRIMARY ATYPICAL [None]
